FAERS Safety Report 5115555-1 (Version None)
Quarter: 2006Q3

REPORT INFORMATION
  Report Type: 
  Country: None (occurrence: None)
  Receive Date: 20060927
  Receipt Date: 20060919
  Transmission Date: 20061208
  Serious: Yes (Hospitalization, Other)
  Sender: FDA-Public Use
  Company Number: US-JNJFOC-20060904819

PATIENT
  Age: 61 Year
  Sex: Female

DRUGS (3)
  1. TOPAMAX [Suspect]
     Indication: NEURALGIA
     Route: 048
  2. PROZAC [Concomitant]
     Indication: DEPRESSION
  3. ANTIHYPERTENSIVE [Concomitant]

REACTIONS (3)
  - CEREBROVASCULAR ACCIDENT [None]
  - EYE PAIN [None]
  - INTRAOCULAR PRESSURE INCREASED [None]
